FAERS Safety Report 5760695-7 (Version None)
Quarter: 2008Q2

REPORT INFORMATION
  Report Type: 
  Country: None (occurrence: None)
  Receive Date: 20080606
  Receipt Date: 20080527
  Transmission Date: 20081010
  Serious: Yes (Other)
  Sender: FDA-Public Use
  Company Number: US-WYE-H04247008

PATIENT
  Sex: Female

DRUGS (5)
  1. EFFEXOR XR [Suspect]
     Indication: BIPOLAR DISORDER
     Route: 048
     Dates: start: 20030101, end: 20080501
  2. EFFEXOR XR [Suspect]
     Indication: SCHIZOAFFECTIVE DISORDER
  3. TRAZODONE HCL [Concomitant]
  4. VISTARIL [Concomitant]
     Dosage: 25 MG PRN
  5. ABILIFY [Concomitant]

REACTIONS (6)
  - DRUG EFFECT DECREASED [None]
  - INSOMNIA [None]
  - MANIA [None]
  - SELF-INJURIOUS IDEATION [None]
  - SUICIDAL IDEATION [None]
  - UNEVALUABLE EVENT [None]
